FAERS Safety Report 6273266-3 (Version None)
Quarter: 2009Q3

REPORT INFORMATION
  Report Type: 
  Country: None (occurrence: None)
  Receive Date: 20090720
  Receipt Date: 20090716
  Transmission Date: 20100115
  Serious: Yes (Hospitalization, Other)
  Sender: FDA-Public Use
  Company Number: CA-AMGEN-US347929

PATIENT
  Sex: Female
  Weight: 8.3 kg

DRUGS (1)
  1. ARANESP [Suspect]
     Indication: DIALYSIS
     Route: 058
     Dates: start: 20080212

REACTIONS (26)
  - ABDOMINAL HERNIA [None]
  - ACUTE RESPIRATORY DISTRESS SYNDROME [None]
  - APLASIA PURE RED CELL [None]
  - CARDIOMYOPATHY [None]
  - CEREBROVASCULAR ACCIDENT [None]
  - CHOLANGITIS [None]
  - CONJUNCTIVITIS BACTERIAL [None]
  - CONVULSION [None]
  - DEHYDRATION [None]
  - DERMATITIS DIAPER [None]
  - ELECTROLYTE IMBALANCE [None]
  - EXTRADURAL HAEMATOMA [None]
  - FEMUR FRACTURE [None]
  - HAEMORRHAGE [None]
  - HYDROCEPHALUS [None]
  - LOW TURNOVER OSTEOPATHY [None]
  - MITRAL VALVE INCOMPETENCE [None]
  - NEUROGENIC BLADDER [None]
  - NEUROGENIC BOWEL [None]
  - OSTEOPENIA [None]
  - PARAPARESIS [None]
  - PERITONITIS [None]
  - SEPSIS [None]
  - THROMBOSIS [None]
  - UPPER GASTROINTESTINAL HAEMORRHAGE [None]
  - VARICES OESOPHAGEAL [None]
